FAERS Safety Report 5090037-4 (Version None)
Quarter: 2006Q3

REPORT INFORMATION
  Report Type: 
  Country: None (occurrence: None)
  Receive Date: 20060823
  Receipt Date: 20060810
  Transmission Date: 20061208
  Serious: Yes (Death, Hospitalization)
  Sender: FDA-Public Use
  Company Number: 2006058183

PATIENT
  Age: 50 Year
  Sex: Male

DRUGS (1)
  1. CELEBREX [Suspect]
     Indication: BACK PAIN
     Dosage: (200 MG)
     Dates: start: 20021030

REACTIONS (16)
  - BACK PAIN [None]
  - CHEST DISCOMFORT [None]
  - COMPLETED SUICIDE [None]
  - DEEP VEIN THROMBOSIS [None]
  - DEPRESSION [None]
  - DIZZINESS [None]
  - DRUG HYPERSENSITIVITY [None]
  - DYSARTHRIA [None]
  - GASTROINTESTINAL DISORDER [None]
  - HYPOAESTHESIA [None]
  - LOSS OF CONSCIOUSNESS [None]
  - NECK PAIN [None]
  - PRODUCTIVE COUGH [None]
  - PYREXIA [None]
  - SPUTUM PURULENT [None]
  - SYNCOPE [None]
